FAERS Safety Report 9120062 (Version 1)
Quarter: 2013Q1

REPORT INFORMATION
  Report Type: Spontaneous
  Country: US (occurrence: US)
  Receive Date: 20130226
  Receipt Date: 20130226
  Transmission Date: 20140127
  Serious: Yes (Life-Threatening, Hospitalization)
  Sender: FDA-Public Use
  Company Number: US-INCYTE CORPORATION-2012IN002620

PATIENT
  Age: 80 Year
  Sex: Male
  Weight: 95.24 kg

DRUGS (19)
  1. JAKAFI [Suspect]
     Indication: MYELOFIBROSIS
     Dosage: 10 MG, BID
     Route: 048
     Dates: start: 20121115
  2. JAKAFI [Suspect]
     Dosage: 15 MG, BID
     Route: 048
  3. JAKAFI [Suspect]
     Dosage: 10 MG, BID
     Route: 048
  4. ASPIRIN [Concomitant]
     Dosage: 325 MG, UNK
  5. NOVOLOG [Concomitant]
  6. HUMALOG [Concomitant]
  7. COZAAR [Concomitant]
  8. AMLODIPINE [Concomitant]
  9. ISOSORBIDE [Concomitant]
  10. HYDROCHLOROTHIAZIDE [Concomitant]
  11. FUROSEMIDE [Concomitant]
  12. ATENOLOL [Concomitant]
  13. SIMVASTATIN [Concomitant]
  14. OMEPRAZOLE [Concomitant]
  15. TESSALON [Concomitant]
  16. ZITHROMAX [Concomitant]
  17. PROVENTIL [Concomitant]
  18. ATORVASTATIN [Concomitant]
  19. NITROGLYCERIN [Concomitant]

REACTIONS (12)
  - Influenza [Unknown]
  - Cardiac failure congestive [Unknown]
  - Renal failure acute [Unknown]
  - Transaminases increased [Unknown]
  - Blood bilirubin increased [Unknown]
  - Ventricular tachycardia [Unknown]
  - Bundle branch block left [Unknown]
  - Gastrointestinal hypomotility [Unknown]
  - Disease progression [Unknown]
  - Flushing [Recovered/Resolved]
  - Anaemia [Recovered/Resolved]
  - Headache [Unknown]
